FAERS Safety Report 21065567 (Version 1)
Quarter: 2022Q3

REPORT INFORMATION
  Report Type: Spontaneous
  Country: ES (occurrence: ES)
  Receive Date: 20220711
  Receipt Date: 20220711
  Transmission Date: 20221027
  Serious: Yes (Death, Hospitalization)
  Sender: FDA-Public Use
  Company Number: ES-MYLANLABS-2022M1051773

PATIENT
  Age: 73 Year
  Sex: Male

DRUGS (4)
  1. CASPOFUNGIN [Suspect]
     Active Substance: CASPOFUNGIN
     Indication: Fungaemia
     Dosage: UNK
     Route: 065
     Dates: start: 2019
  2. IRINOTECAN HYDROCHLORIDE [Concomitant]
     Active Substance: IRINOTECAN HYDROCHLORIDE
     Indication: Adenocarcinoma of colon
     Dosage: UNK
     Route: 065
  3. CETUXIMAB [Concomitant]
     Active Substance: CETUXIMAB
     Indication: Adenocarcinoma of colon
     Dosage: UNK
     Route: 065
  4. CIPROFLOXACIN [Concomitant]
     Active Substance: CIPROFLOXACIN
     Indication: Evidence based treatment
     Dosage: UNK
     Route: 065
     Dates: start: 2019

REACTIONS (1)
  - Drug ineffective [Fatal]

NARRATIVE: CASE EVENT DATE: 20190101
